FAERS Safety Report 19413051 (Version 1)
Quarter: 2021Q2

REPORT INFORMATION
  Report Type: Spontaneous
  Country: US (occurrence: US)
  Receive Date: 20210614
  Receipt Date: 20210614
  Transmission Date: 20210717
  Serious: No
  Sender: FDA-Public Use
  Company Number: US-GALDERMA-US2021010565

PATIENT
  Age: 36 Year
  Sex: Female

DRUGS (4)
  1. DIFFERIN RESTORATIVE NIGHT MOISTURIZER (COSMETICS) [Suspect]
     Active Substance: COSMETICS
     Indication: SCAR
     Route: 061
     Dates: start: 202103
  2. KOREAN BRAND MOISTURIZER [Concomitant]
     Indication: PRODUCT USED FOR UNKNOWN INDICATION
     Route: 065
  3. DIFFERIN DARK SPOT CORRECTING SERUM [Suspect]
     Active Substance: HYDROQUINONE
     Indication: SKIN HYPERPIGMENTATION
     Route: 061
     Dates: start: 202103, end: 202103
  4. DIFFERIN GEL [Suspect]
     Active Substance: ADAPALENE
     Indication: ACNE
     Dosage: 0.1%
     Route: 061
     Dates: start: 202102

REACTIONS (11)
  - Dermatitis [Recovered/Resolved]
  - Acne cystic [Not Recovered/Not Resolved]
  - Skin hyperpigmentation [Not Recovered/Not Resolved]
  - Skin burning sensation [Recovered/Resolved]
  - Pain of skin [Recovered/Resolved]
  - Skin texture abnormal [Not Recovered/Not Resolved]
  - Scar [Not Recovered/Not Resolved]
  - Skin irritation [Recovered/Resolved]
  - Dry skin [Recovered/Resolved]
  - Rash papular [Not Recovered/Not Resolved]
  - Acne [Not Recovered/Not Resolved]

NARRATIVE: CASE EVENT DATE: 202102
